FAERS Safety Report 7850945-5 (Version None)
Quarter: 2011Q3

REPORT INFORMATION
  Report Type: 
  Country: None (occurrence: None)
  Receive Date: 20110901
  Receipt Date: 20101028
  Transmission Date: 20111222
  Serious: Yes (Other)
  Sender: FDA-Public Use
  Company Number: 253547USA

PATIENT
  Sex: Female

DRUGS (1)
  1. METOCLOPRAMIDE [Suspect]
     Dosage: (10 MG), (10 MG)
     Dates: start: 20060201, end: 20090901

REACTIONS (1)
  - TARDIVE DYSKINESIA [None]
